FAERS Safety Report 7229857-6 (Version None)
Quarter: 2011Q1

REPORT INFORMATION
  Report Type: 
  Country: None (occurrence: None)
  Receive Date: 20110117
  Receipt Date: 20110105
  Transmission Date: 20110831
  Serious: Yes (Other)
  Sender: FDA-Public Use
  Company Number: PHHY2011ES00798

PATIENT
  Age: 52 Year
  Sex: Female

DRUGS (3)
  1. ADIRO [Concomitant]
     Dosage: UNK
     Dates: start: 20070604
  2. LAMICTAL [Concomitant]
     Dosage: UNK
     Dates: start: 20070718
  3. CITALOPRAM BEXAL [Suspect]
     Indication: DEPRESSION
     Dosage: 20 MG, DAILY
     Route: 048
     Dates: start: 20101109, end: 20101114

REACTIONS (3)
  - ANXIETY [None]
  - VOMITING [None]
  - MUSCLE CONTRACTURE [None]
